FAERS Safety Report 6476168-2 (Version None)
Quarter: 2009Q4

REPORT INFORMATION
  Report Type: 
  Country: None (occurrence: None)
  Receive Date: 20091204
  Receipt Date: 20090115
  Transmission Date: 20100525
  Serious: No
  Sender: FDA-Public Use
  Company Number: US-AMGEN-KDL328612

PATIENT
  Sex: Female
  Weight: 104.4 kg

DRUGS (5)
  1. ENBREL [Suspect]
     Indication: PSORIATIC ARTHROPATHY
     Route: 058
     Dates: start: 20080301
  2. CLOBETASOL PROPIONATE [Concomitant]
  3. LEVOTHYROXINE SODIUM [Concomitant]
  4. CIMETIDINE [Concomitant]
  5. MULTI-VITAMINS [Concomitant]

REACTIONS (2)
  - PSORIASIS [None]
  - THERAPEUTIC RESPONSE DECREASED [None]
